FAERS Safety Report 18062839 (Version 1)
Quarter: 2020Q3

REPORT INFORMATION
  Report Type: Spontaneous
  Country: US (occurrence: US)
  Receive Date: 20200724
  Receipt Date: 20200724
  Transmission Date: 20201103
  Serious: Yes (Other)
  Sender: FDA-Public Use
  Company Number: US-TEVA-2020-US-1804394

PATIENT
  Sex: Male

DRUGS (1)
  1. GABAPENTIN. [Suspect]
     Active Substance: GABAPENTIN
     Route: 065

REACTIONS (11)
  - Constipation [Unknown]
  - Loss of personal independence in daily activities [Unknown]
  - Pain [Unknown]
  - Mood altered [Unknown]
  - Amnesia [Unknown]
  - Oral surgery [Unknown]
  - Vascular operation [Unknown]
  - Somnolence [Unknown]
  - Urinary tract disorder [Unknown]
  - B-cell lymphoma [Unknown]
  - Loss of consciousness [Unknown]
